FAERS Safety Report 9839846 (Version 1)
Quarter: 2014Q1

REPORT INFORMATION
  Report Type: Spontaneous
  Country: CA (occurrence: CA)
  Receive Date: 20140124
  Receipt Date: 20140124
  Transmission Date: 20141002
  Serious: Yes (Hospitalization)
  Sender: FDA-Public Use
  Company Number: CA-ASTRAZENECA-2014SE03585

PATIENT
  Age: 53 Year
  Sex: Female
  Weight: 63.5 kg

DRUGS (4)
  1. PULMICORT TURBUHALER [Suspect]
     Route: 055
  2. SALBUTAMOL [Suspect]
     Route: 065
  3. BUCKLEY^S NOS [Concomitant]
  4. TYLENOL [Concomitant]

REACTIONS (1)
  - Tremor [Unknown]
